FAERS Safety Report 7025543-6 (Version None)
Quarter: 2010Q4

REPORT INFORMATION
  Report Type: 
  Country: None (occurrence: None)
  Receive Date: 20101003
  Receipt Date: 20100922
  Transmission Date: 20110411
  Serious: Yes (Hospitalization)
  Sender: FDA-Public Use
  Company Number: PHHY2010JP24881

PATIENT
  Sex: Female

DRUGS (20)
  1. NEORAL [Suspect]
     Indication: LUNG TRANSPLANT
     Dosage: 80 MG DAILY
     Route: 048
     Dates: start: 20070522, end: 20070522
  2. NEORAL [Suspect]
     Dosage: 700 MG DAILY
     Route: 048
     Dates: start: 20070523, end: 20070607
  3. NEORAL [Suspect]
     Dosage: 300 MG DAILY
     Route: 048
     Dates: start: 20070608, end: 20070624
  4. NEORAL [Suspect]
     Dosage: 280 MG DAILY
     Route: 048
     Dates: start: 20070625, end: 20070802
  5. NEORAL [Suspect]
     Dosage: 200 MG DAILY
     Route: 048
     Dates: start: 20070803, end: 20070830
  6. NEORAL [Suspect]
     Dosage: 300 MG DAILY
     Route: 048
     Dates: start: 20070831
  7. SANDIMMUNE [Suspect]
     Indication: LUNG TRANSPLANT
     Dosage: 12 MG DAILY
     Route: 042
     Dates: start: 20070503, end: 20070505
  8. SANDIMMUNE [Suspect]
     Dosage: 24 MG DAILY
     Route: 042
     Dates: start: 20070506, end: 20070507
  9. SANDIMMUNE [Suspect]
     Dosage: 60 MG DAILY
     Route: 042
     Dates: start: 20070508, end: 20070522
  10. ADRENOCORTICOTROPHIC HORMONE [Suspect]
     Indication: LUNG TRANSPLANT
     Dosage: 1000 MG DAILY
     Route: 042
     Dates: start: 20070501, end: 20070501
  11. ADRENOCORTICOTROPHIC HORMONE [Suspect]
     Dosage: 250 MG DAILY
     Route: 042
     Dates: start: 20070502, end: 20070502
  12. ADRENOCORTICOTROPHIC HORMONE [Suspect]
     Dosage: 40 MG DAILY
     Route: 042
     Dates: start: 20070503, end: 20070504
  13. ADRENOCORTICOTROPHIC HORMONE [Suspect]
     Dosage: 20 MG DAILY
     Route: 042
     Dates: start: 20070505, end: 20070522
  14. ADRENOCORTICOTROPHIC HORMONE [Suspect]
     Dosage: 12.5 MG DAILY
     Route: 048
     Dates: start: 20070523, end: 20070819
  15. ADRENOCORTICOTROPHIC HORMONE [Suspect]
     Dosage: 10 MG DAILY
     Route: 048
     Dates: start: 20070820, end: 20070910
  16. ADRENOCORTICOTROPHIC HORMONE [Suspect]
     Dosage: 7.5 MG DAILY
     Route: 048
     Dates: start: 20070911, end: 20080331
  17. ADRENOCORTICOTROPHIC HORMONE [Suspect]
     Dosage: 6.25 MG DAILY
     Route: 048
     Dates: start: 20080401
  18. CELLCEPT [Suspect]
     Indication: LUNG TRANSPLANT
     Dosage: 250 MG DAILY
     Route: 048
     Dates: start: 20070502, end: 20070502
  19. CELLCEPT [Suspect]
     Dosage: 500 MG DAILY
     Route: 048
     Dates: start: 20070503, end: 20080107
  20. CELLCEPT [Suspect]
     Dosage: 750 MG DAILY
     Route: 048
     Dates: start: 20080108

REACTIONS (6)
  - BRONCHOSTENOSIS [None]
  - LASER THERAPY [None]
  - LUNG OPERATION [None]
  - PULMONARY ARTERY THERAPEUTIC PROCEDURE [None]
  - TRACHEOSTOMY [None]
  - TRACHEOSTOMY MALFUNCTION [None]
